FAERS Safety Report 20254809 (Version 1)
Quarter: 2021Q4

REPORT INFORMATION
  Report Type: Spontaneous
  Country: US (occurrence: None)
  Receive Date: 20211230
  Receipt Date: 20211230
  Transmission Date: 20220303
  Serious: No
  Sender: FDA-Public Use
  Company Number: 2021A875910

PATIENT
  Sex: Female

DRUGS (1)
  1. BYDUREON BCISE [Suspect]
     Active Substance: EXENATIDE
     Route: 058

REACTIONS (6)
  - Cough [Unknown]
  - Sneezing [Unknown]
  - Choking [Unknown]
  - Stress [Unknown]
  - Injury associated with device [Unknown]
  - Wrong technique in device usage process [Unknown]
